FAERS Safety Report 17684258 (Version 4)
Quarter: 2025Q3

REPORT INFORMATION
  Report Type: Report from Study
  Country: US (occurrence: US)
  Receive Date: 20200420
  Receipt Date: 20250910
  Transmission Date: 20251021
  Serious: Yes (Other)
  Sender: ROCHE
  Company Number: US-ROCHE-2583503

PATIENT
  Age: 78 Year
  Sex: Male
  Weight: 110.22 kg

DRUGS (5)
  1. ACTEMRA [Suspect]
     Active Substance: TOCILIZUMAB
     Indication: Giant cell arteritis
     Route: 058
  2. ACTEMRA [Suspect]
     Active Substance: TOCILIZUMAB
     Indication: Aortic aneurysm rupture
     Route: 058
  3. ACTEMRA [Suspect]
     Active Substance: TOCILIZUMAB
     Indication: Embolism
     Route: 058
  4. ACTEMRA [Suspect]
     Active Substance: TOCILIZUMAB
     Indication: Deep vein thrombosis
  5. ACTEMRA [Suspect]
     Active Substance: TOCILIZUMAB
     Indication: Back pain

REACTIONS (7)
  - Aortic aneurysm repair [Unknown]
  - Thrombosis [Unknown]
  - Vena cava filter insertion [Unknown]
  - Intervertebral disc protrusion [Unknown]
  - Orthosis user [Unknown]
  - Walking aid user [Unknown]
  - Off label use [Unknown]
